FAERS Safety Report 4410976-4 (Version None)
Quarter: 2004Q3

REPORT INFORMATION
  Report Type: 
  Country: None (occurrence: None)
  Receive Date: 20040729
  Receipt Date: 20040722
  Transmission Date: 20050211
  Serious: Yes (Hospitalization)
  Sender: FDA-Public Use
  Company Number: FRPFM-E-20040080

PATIENT
  Age: 54 Year
  Sex: Male

DRUGS (2)
  1. NAVELBINE [Suspect]
     Indication: SKIN CANCER
     Route: 042
     Dates: start: 20031201, end: 20031205
  2. PARAPLATIN [Suspect]
     Indication: SKIN CANCER
     Dates: start: 20031201, end: 20031205

REACTIONS (2)
  - BONE MARROW DEPRESSION [None]
  - PYREXIA [None]
